FAERS Safety Report 10010559 (Version 1)
Quarter: 2014Q1

REPORT INFORMATION
  Report Type: Spontaneous
  Country: US (occurrence: US)
  Receive Date: 20140314
  Receipt Date: 20140314
  Transmission Date: 20141002
  Serious: Yes (Other)
  Sender: FDA-Public Use
  Company Number: US-PFIZER INC-2014072796

PATIENT
  Age: 56 Year
  Sex: Female
  Weight: 83.45 kg

DRUGS (1)
  1. LIPITOR [Suspect]
     Dosage: UNK

REACTIONS (11)
  - Apparent death [Unknown]
  - Brain injury [Unknown]
  - Cardiac disorder [Unknown]
  - Hypothyroidism [Unknown]
  - Chronic obstructive pulmonary disease [Unknown]
  - Hypertension [Unknown]
  - Panic attack [Unknown]
  - Back pain [Unknown]
  - Intervertebral disc compression [Unknown]
  - Spinal disorder [Unknown]
  - Visual acuity reduced [Unknown]
